APPROVED DRUG PRODUCT: HALOPERIDOL
Active Ingredient: HALOPERIDOL
Strength: 10MG
Dosage Form/Route: TABLET;ORAL
Application: A071375 | Product #001
Applicant: WATSON LABORATORIES INC
Approved: Jun 3, 1988 | RLD: No | RS: No | Type: DISCN